FAERS Safety Report 7951325-4 (Version None)
Quarter: 2011Q4

REPORT INFORMATION
  Report Type: 
  Country: None (occurrence: None)
  Receive Date: 20111201
  Receipt Date: 20111125
  Transmission Date: 20120403
  Serious: Yes (Death)
  Sender: FDA-Public Use
  Company Number: JP-ASTELLAS-2011JP008681

PATIENT
  Age: 65 Year
  Sex: Male

DRUGS (3)
  1. IRINOTECAN HCL [Concomitant]
     Route: 065
  2. ETOPOSIDE [Concomitant]
     Route: 065
  3. FUNGUARD [Suspect]
     Indication: CANDIDIASIS
     Route: 065

REACTIONS (1)
  - TRICHOSPORON INFECTION [None]
